FAERS Safety Report 5580173-8 (Version None)
Quarter: 2007Q4

REPORT INFORMATION
  Report Type: 
  Country: None (occurrence: None)
  Receive Date: 20071227
  Receipt Date: 20071214
  Transmission Date: 20080405
  Serious: Yes (Other)
  Sender: FDA-Public Use
  Company Number: CHNY2007JP02667

PATIENT
  Age: 73 Year
  Sex: Female

DRUGS (7)
  1. PURSENNID (NCH)(SENNA GLYCOSIDES (CA SALTS OF PURIFIED SENNA EXTRACT)) [Suspect]
     Indication: CONSTIPATION
     Dosage: 12 MG, BID, ORAL
     Route: 048
  2. RADIATION THERAPY (NO INGREDIENTS/SUBSTANCES) [Concomitant]
  3. LIVACT (AMINO ACIDS NOS) [Concomitant]
  4. URSO 250 [Concomitant]
  5. NORVASC [Concomitant]
  6. LASIX [Concomitant]
  7. ALDACTONE [Concomitant]

REACTIONS (2)
  - ENCEPHALOPATHY [None]
  - FEELING ABNORMAL [None]
